FAERS Safety Report 21512059 (Version 1)
Quarter: 2022Q4

REPORT INFORMATION
  Report Type: Spontaneous
  Country: US (occurrence: US)
  Receive Date: 20221027
  Receipt Date: 20221027
  Transmission Date: 20230113
  Serious: Yes (Disabling)
  Sender: FDA-Public Use
  Company Number: US-SANOFI-01327163

PATIENT
  Age: 80 Year
  Sex: Female

DRUGS (1)
  1. ASPERCREME WITH LIDOCAINE [Suspect]
     Active Substance: LIDOCAINE
     Indication: Arthritis
     Dosage: UNK
     Route: 065
     Dates: start: 2022

REACTIONS (1)
  - Arthritis [Unknown]
